FAERS Safety Report 18531991 (Version 1)
Quarter: 2020Q4

REPORT INFORMATION
  Report Type: Spontaneous
  Country: IT (occurrence: IT)
  Receive Date: 20201123
  Receipt Date: 20201123
  Transmission Date: 20210114
  Serious: Yes (Hospitalization, Other)
  Sender: FDA-Public Use
  Company Number: IT-SUN PHARMACEUTICAL INDUSTRIES LTD-2020RR-267250

PATIENT
  Age: 71 Year
  Sex: Male

DRUGS (4)
  1. OXALIPLATIN. [Suspect]
     Active Substance: OXALIPLATIN
     Indication: CHEMOTHERAPY
     Dosage: 120 MILLIGRAM/SQ. METER, ON DAY 1, XELOX REGIMEN
     Route: 065
     Dates: start: 201809, end: 201901
  2. OXALIPLATIN. [Suspect]
     Active Substance: OXALIPLATIN
     Indication: GASTRIC CANCER
  3. CAPECITABINE. [Suspect]
     Active Substance: CAPECITABINE
     Indication: CHEMOTHERAPY
     Dosage: 825 MILLIGRAM/SQ. METER, TWICE A DAY FOR 14 DAYS IN A 21-DAYS CYCLE, XELOX REGIMEN
     Route: 065
     Dates: start: 201809, end: 201901
  4. CAPECITABINE. [Suspect]
     Active Substance: CAPECITABINE
     Indication: GASTRIC CANCER

REACTIONS (1)
  - Hepatic infarction [Recovering/Resolving]
